FAERS Safety Report 9744022 (Version 2)
Quarter: 2014Q1

REPORT INFORMATION
  Report Type: Spontaneous
  Country: US (occurrence: US)
  Receive Date: 20131210
  Receipt Date: 20140108
  Transmission Date: 20141002
  Serious: Yes (Other)
  Sender: FDA-Public Use
  Company Number: US-GLAXOSMITHKLINE-A1052284A

PATIENT
  Age: 67 Year
  Sex: Male

DRUGS (11)
  1. LOVAZA [Suspect]
     Indication: BLOOD TRIGLYCERIDES INCREASED
     Dosage: 4CAP PER DAY
     Route: 065
     Dates: start: 2009
  2. ADVICOR [Concomitant]
  3. BABY ASPIRIN [Concomitant]
  4. NEXIUM [Concomitant]
  5. FISH OIL [Concomitant]
  6. ATENOLOL [Concomitant]
  7. MAGNESIUM [Concomitant]
  8. VITAMIN B [Concomitant]
  9. CO ENZYME Q10 [Concomitant]
  10. RESVERATROL [Concomitant]
  11. VITAMIN D [Concomitant]

REACTIONS (3)
  - Metal poisoning [Not Recovered/Not Resolved]
  - Blood mercury abnormal [Not Recovered/Not Resolved]
  - Blood triglycerides increased [Not Recovered/Not Resolved]
